FAERS Safety Report 13031092 (Version 1)
Quarter: 2016Q4

REPORT INFORMATION
  Report Type: Spontaneous
  Country: IR (occurrence: IR)
  Receive Date: 20161215
  Receipt Date: 20161215
  Transmission Date: 20170207
  Serious: Yes (Hospitalization)
  Sender: FDA-Public Use
  Company Number: IR-BION-005784

PATIENT
  Age: 18 Year
  Sex: Female

DRUGS (1)
  1. SODIUM VALPROIC ACID TABLET 80 MG [Suspect]
     Active Substance: VALPROIC ACID
     Dosage: STRENGTH: 80 MG??INGESTIED OF 200 TABLETS OF SODIUM VPA

REACTIONS (7)
  - Intentional overdose [Recovered/Resolved]
  - Suicide attempt [Unknown]
  - Coma [Recovered/Resolved]
  - Hyperammonaemia [Recovered/Resolved]
  - Respiratory symptom [Unknown]
  - Brain oedema [Recovered/Resolved]
  - Optic neuritis [Not Recovered/Not Resolved]
